FAERS Safety Report 14154559 (Version 1)
Quarter: 2017Q4

REPORT INFORMATION
  Report Type: Spontaneous
  Country: US (occurrence: US)
  Receive Date: 20171102
  Receipt Date: 20171102
  Transmission Date: 20180321
  Serious: No
  Sender: FDA-Public Use
  Company Number: US-BAYER-2017-206548

PATIENT
  Sex: Male

DRUGS (14)
  1. MIRTAZAPINE. [Concomitant]
     Active Substance: MIRTAZAPINE
  2. PAROXETINE HYDROCHLORIDE. [Concomitant]
     Active Substance: PAROXETINE HYDROCHLORIDE
  3. ZOLPIDEM TARTRATE. [Concomitant]
     Active Substance: ZOLPIDEM TARTRATE
  4. CIPROFLOXACIN HYDROCHLORIDE. [Concomitant]
     Active Substance: CIPROFLOXACIN HYDROCHLORIDE
  5. ACETAMINOPHEN. [Concomitant]
     Active Substance: ACETAMINOPHEN
  6. AMOXICILLIN. [Concomitant]
     Active Substance: AMOXICILLIN
  7. ATENOLOL. [Concomitant]
     Active Substance: ATENOLOL
  8. AMOXIL [Concomitant]
     Active Substance: AMOXICILLIN
  9. DIAZEPAM. [Concomitant]
     Active Substance: DIAZEPAM
  10. ATORVASTATIN CALCIUM. [Concomitant]
     Active Substance: ATORVASTATIN CALCIUM
  11. PERMETHRIN. [Concomitant]
     Active Substance: PERMETHRIN
  12. DONEPEZIL HYDROCHLORIDE. [Concomitant]
     Active Substance: DONEPEZIL HYDROCHLORIDE
  13. IBUPROFEN. [Concomitant]
     Active Substance: IBUPROFEN
  14. BETASERON [Suspect]
     Active Substance: INTERFERON BETA-1B
     Indication: MULTIPLE SCLEROSIS
     Dosage: 0.25 MG, QOD
     Route: 058

REACTIONS (1)
  - Injection site rash [Not Recovered/Not Resolved]
